FAERS Safety Report 11359614 (Version 1)
Quarter: 2015Q3

REPORT INFORMATION
  Report Type: Spontaneous
  Country: US (occurrence: None)
  Receive Date: 20150807
  Receipt Date: 20150807
  Transmission Date: 20151125
  Serious: Yes (Hospitalization)
  Sender: FDA-Public Use
  Company Number: None

PATIENT
  Age: 73 Year
  Sex: Male
  Weight: 108 kg

DRUGS (2)
  1. PREDNISONE. [Suspect]
     Active Substance: PREDNISONE
     Dates: start: 20150803
  2. TAXOTERE [Suspect]
     Active Substance: DOCETAXEL
     Dates: start: 20150623

REACTIONS (14)
  - Gastritis [None]
  - Gastrointestinal telangiectasia [None]
  - Radiation proctitis [None]
  - Large intestine polyp [None]
  - Gastric polyps [None]
  - Diverticulum intestinal [None]
  - Purulence [None]
  - Blood pressure systolic decreased [None]
  - Gastrointestinal haemorrhage [None]
  - Tachycardia [None]
  - Gastrointestinal disorder [None]
  - Rectal haemorrhage [None]
  - Rectal abscess [None]
  - Colon adenoma [None]

NARRATIVE: CASE EVENT DATE: 20150615
